FAERS Safety Report 7625679-2 (Version None)
Quarter: 2011Q3

REPORT INFORMATION
  Report Type: 
  Country: None (occurrence: None)
  Receive Date: 20110721
  Receipt Date: 20110713
  Transmission Date: 20111222
  Serious: Yes (Hospitalization)
  Sender: FDA-Public Use
  Company Number: FR-JNJFOC-20110706216

PATIENT
  Age: 9 Year
  Sex: Male
  Weight: 44 kg

DRUGS (4)
  1. RISPERDAL [Suspect]
     Indication: PERSECUTORY DELUSION
     Route: 048
  2. RISPERDAL [Suspect]
     Indication: AGGRESSION
     Route: 048
  3. RISPERDAL [Suspect]
     Route: 048
  4. RISPERDAL [Suspect]
     Route: 048

REACTIONS (3)
  - TRANSAMINASES INCREASED [None]
  - PSYCHOTIC DISORDER [None]
  - OFF LABEL USE [None]
